FAERS Safety Report 4678975-5 (Version None)
Quarter: 2005Q2

REPORT INFORMATION
  Report Type: 
  Country: None (occurrence: None)
  Receive Date: 20050531
  Receipt Date: 20050519
  Transmission Date: 20051028
  Serious: Yes (Hospitalization)
  Sender: FDA-Public Use
  Company Number: A0552416A

PATIENT
  Age: 16 Year
  Sex: Male

DRUGS (2)
  1. PAXIL [Suspect]
     Indication: DEPRESSION
     Dosage: 12.5 MG / PER DAY / ORAL
     Route: 048
     Dates: start: 20020905
  2. SEMISODIUM VALPROATE [Concomitant]

REACTIONS (5)
  - ANXIETY [None]
  - INTENTIONAL MISUSE [None]
  - MAJOR DEPRESSION [None]
  - SELF MUTILATION [None]
  - SUICIDE ATTEMPT [None]
